FAERS Safety Report 23275987 (Version 1)
Quarter: 2023Q4

REPORT INFORMATION
  Report Type: Spontaneous
  Country: IN (occurrence: IN)
  Receive Date: 20231208
  Receipt Date: 20231208
  Transmission Date: 20240110
  Serious: Yes (Life-Threatening, Hospitalization, Disabling, Other)
  Sender: FDA-Public Use
  Company Number: IN-drreddys-SPO/IND/23/0188078

PATIENT
  Age: 6 Decade
  Sex: Male

DRUGS (5)
  1. RITUXIMAB [Suspect]
     Active Substance: RITUXIMAB
     Indication: Immunosuppressant drug therapy
     Dosage: 20 DAYS BEFORE TRANSPLANT
  2. TACROLIMUS [Suspect]
     Active Substance: TACROLIMUS
     Indication: Immunosuppressant drug therapy
  3. METHYLPREDNISOLONE [Suspect]
     Active Substance: METHYLPREDNISOLONE
     Indication: Immunosuppressant drug therapy
     Dosage: PULSE
  4. MYCOPHENOLATE MOFETIL [Suspect]
     Active Substance: MYCOPHENOLATE MOFETIL
     Indication: Immunosuppressant drug therapy
  5. BASILIXIMAB [Suspect]
     Active Substance: BASILIXIMAB
     Indication: Immunosuppressant drug therapy
     Dosage: ON DAYS 0 AND 4 OF THE TRANSPLANT

REACTIONS (10)
  - Retinal detachment [Recovering/Resolving]
  - Optic perineuritis [Unknown]
  - Vitreous haemorrhage [Recovering/Resolving]
  - Bronchopulmonary aspergillosis [Recovering/Resolving]
  - Cellulitis orbital [Recovering/Resolving]
  - Pneumonia klebsiella [Recovering/Resolving]
  - Cytomegalovirus chorioretinitis [Recovering/Resolving]
  - Thrombocytopenia [Recovering/Resolving]
  - Leukopenia [Unknown]
  - Blindness [Unknown]
